FAERS Safety Report 9194342 (Version 1)
Quarter: 2013Q1

REPORT INFORMATION
  Report Type: Report from Study
  Country: US (occurrence: US)
  Receive Date: 20130327
  Receipt Date: 20130327
  Transmission Date: 20140127
  Serious: Yes (Hospitalization)
  Sender: FDA-Public Use
  Company Number: US-TEVA-394299USA

PATIENT
  Age: 66 Year
  Sex: Female

DRUGS (34)
  1. FLUOROURACIL [Suspect]
     Indication: METASTATIC GASTRIC CANCER
     Dosage: 1 IN 21 D
     Route: 041
     Dates: start: 20120305, end: 20120310
  2. CDDP [Suspect]
     Dosage: 1 IN 21 D
     Route: 041
     Dates: start: 20120305, end: 20120305
  3. ATACAND [Concomitant]
     Indication: HYPERTENSION
  4. ORTHO-GYNEST [Concomitant]
     Indication: OOPHORECTOMY
  5. OLAMINE(PIROCTONE ETHANOLAMINE) [Concomitant]
     Indication: PROPHYLAXIS
     Dates: start: 20101208
  6. NEUROBION [Concomitant]
     Indication: GASTRECTOMY
     Dates: start: 20100330
  7. BAREXAL [Concomitant]
     Indication: DIARRHOEA
     Dosage: PRN
  8. IMODIUM [Concomitant]
     Indication: DIARRHOEA
     Dosage: PRN
     Dates: start: 20120312
  9. BICARBONATE BUCCAL, MOUTH WASH(SODIUM BICARBONATE) (SODIUM BICARBONATE [Concomitant]
     Indication: STOMATITIS
     Dates: start: 20120313
  10. ZANTAC [Concomitant]
     Indication: DYSPEPSIA
     Dates: start: 20120312, end: 20120313
  11. CONTRAMAL [Concomitant]
     Indication: ODYNOPHAGIA
     Dates: start: 20120313, end: 20120314
  12. MOTILIUM [Concomitant]
     Indication: NAUSEA
     Dates: start: 20120311
  13. LITICAN [Concomitant]
     Indication: NAUSEA
     Dates: start: 20120311
  14. SYNGEL [Concomitant]
     Indication: PROPHYLAXIS
     Dates: start: 20120315, end: 20120328
  15. MS CONTIN [Concomitant]
     Indication: ODYNOPHAGIA
     Dates: start: 20120315
  16. MS DIRECT [Concomitant]
     Indication: ODYNOPHAGIA
     Dates: start: 20120315
  17. BLOOD TRANSFUSION [Concomitant]
     Indication: ANAEMIA
     Dates: start: 20120320, end: 20120321
  18. PRESERVISION (PRESERVISION EYE VITAMIN AND MINNERAL SUPPL [Concomitant]
     Indication: PROPHYLAXIS
     Dates: start: 20101001
  19. SOFTENE [Concomitant]
     Indication: CONSTIPATION PROPHYLAXIS
     Dates: start: 20120315
  20. MOVICOL [Concomitant]
     Indication: CONSTIPATION PROPHYLAXIS
     Dates: start: 20120313
  21. MAGNESIUM SULFATE [Concomitant]
     Indication: HYPOMAGNESAEMIA
     Dates: start: 20120313, end: 20120327
  22. DIFLUCAN [Concomitant]
     Indication: PROPHYLAXIS
     Dates: start: 20120312, end: 20120322
  23. CLEXANE [Concomitant]
     Indication: THROMBOSIS PROPHYLAXIS
     Dates: start: 20130312, end: 20130313
  24. TRADONAL [Concomitant]
     Indication: ODYNOPHAGIA
     Dates: start: 20120312, end: 20120315
  25. ENTEROL [Concomitant]
     Indication: DYSPEPSIA
     Dates: start: 2012
  26. EMEND [Concomitant]
     Indication: PROPHYLAXIS OF NAUSEA AND VOMITING
     Dates: start: 20120305, end: 20120531
  27. ONDANSETRON [Concomitant]
     Indication: PROPHYLAXIS OF NAUSEA AND VOMITING
     Dates: start: 20120305, end: 20120531
  28. DEXAMETHASONE [Concomitant]
     Indication: PROPHYLAXIS
     Dates: start: 20120305, end: 20120531
  29. MEDROL [Concomitant]
     Indication: PROPHYLAXIS
     Dates: start: 20120305
  30. LIQUID PHYSIOLOGIC [Concomitant]
     Indication: DEHYDRATION
     Dates: start: 20120312, end: 20120316
  31. PERFUSALGAN [Concomitant]
     Indication: DYSPEPSIA
     Route: 042
     Dates: start: 20120312, end: 20120312
  32. NACL [Concomitant]
     Indication: HYPONATRAEMIA
     Dates: start: 20120312, end: 20120316
  33. PARACETAMOL [Concomitant]
     Indication: PYREXIA
     Dates: start: 20120314, end: 20120316
  34. PRIMPERAN [Concomitant]
     Indication: NAUSEA
     Dates: start: 20120316

REACTIONS (8)
  - Hypokalaemia [Recovered/Resolved]
  - Decreased appetite [Recovered/Resolved]
  - Nausea [None]
  - Dyspepsia [None]
  - Fungal infection [None]
  - Oesophageal infection [None]
  - Febrile neutropenia [None]
  - Mucosal inflammation [None]
